FAERS Safety Report 4890597-X (Version None)
Quarter: 2006Q1

REPORT INFORMATION
  Report Type: 
  Country: None (occurrence: None)
  Receive Date: 20060125
  Receipt Date: 20060113
  Transmission Date: 20060701
  Serious: Yes (Hospitalization)
  Sender: FDA-Public Use
  Company Number: IT-JNJFOC-20060103214

PATIENT
  Sex: Female
  Weight: 85 kg

DRUGS (8)
  1. REOPRO [Suspect]
     Indication: ACUTE MYOCARDIAL INFARCTION
     Route: 042
  2. RETEPLASE [Suspect]
     Indication: ACUTE MYOCARDIAL INFARCTION
     Route: 042
  3. ASPIRIN [Concomitant]
  4. ACE INHIBITOR [Concomitant]
  5. BETA BLOCKERS [Concomitant]
  6. DIURETICS [Concomitant]
  7. CLOPIDOGREL [Concomitant]
  8. TICLOPIDINE HCL [Concomitant]

REACTIONS (2)
  - CARDIAC FAILURE CONGESTIVE [None]
  - CORONARY ARTERY STENOSIS [None]
